FAERS Safety Report 10580942 (Version 4)
Quarter: 2015Q3

REPORT INFORMATION
  Report Type: Spontaneous
  Country: KR (occurrence: None)
  Receive Date: 20141110
  Receipt Date: 20150707
  Transmission Date: 20151125
  Serious: Yes (Other)
  Sender: FDA-Public Use
  Company Number: 2014-20679

PATIENT
  Age: 66 Year
  Sex: Female

DRUGS (2)
  1. VITAMIN D (COLECALCIFEROL) [Concomitant]
  2. EYLEA [Suspect]
     Active Substance: AFLIBERCEPT
     Indication: AGE-RELATED MACULAR DEGENERATION
     Route: 031
     Dates: start: 20140924, end: 20140924

REACTIONS (23)
  - Blindness unilateral [None]
  - Gastritis [None]
  - Cataract [None]
  - Palpitations [None]
  - Discomfort [None]
  - Visual field defect [None]
  - Weight decreased [None]
  - Malabsorption [None]
  - Depressed mood [None]
  - Arthralgia [None]
  - Visual brightness [None]
  - Depression [None]
  - Body height decreased [None]
  - Abnormal sensation in eye [None]
  - Dry eye [None]
  - Keratitis [None]
  - Age-related macular degeneration [None]
  - Hepatic enzyme abnormal [None]
  - Fatigue [None]
  - Visual impairment [None]
  - Osteoporosis [None]
  - Eye pain [None]
  - Dizziness [None]

NARRATIVE: CASE EVENT DATE: 201410
